FAERS Safety Report 4709277-6 (Version None)
Quarter: 2005Q3

REPORT INFORMATION
  Report Type: 
  Country: None (occurrence: None)
  Receive Date: 20050708
  Receipt Date: 20050706
  Transmission Date: 20060218
  Serious: Yes (Life-Threatening, Hospitalization)
  Sender: FDA-Public Use
  Company Number: 2005AC01008

PATIENT
  Age: 16888 Day
  Sex: Male

DRUGS (2)
  1. CRESTOR [Suspect]
     Route: 048
     Dates: end: 20050617
  2. ALLOPURINOLUM [Suspect]
     Route: 048
     Dates: end: 20050617

REACTIONS (2)
  - CHOLESTASIS [None]
  - HEPATITIS [None]
